FAERS Safety Report 6754177-3 (Version None)
Quarter: 2010Q2

REPORT INFORMATION
  Report Type: 
  Country: None (occurrence: None)
  Receive Date: 20100603
  Receipt Date: 20100528
  Transmission Date: 20101027
  Serious: Yes (Hospitalization)
  Sender: FDA-Public Use
  Company Number: US-ASTRAZENECA-2010SE25132

PATIENT
  Sex: Male

DRUGS (3)
  1. SEROQUEL XR [Suspect]
     Indication: BIPOLAR DISORDER
     Route: 048
  2. SEROQUEL XR [Suspect]
     Indication: SCHIZOPHRENIA
     Route: 048
  3. SYMBICORT [Suspect]
     Dosage: 160/4.5MCG
     Route: 055

REACTIONS (3)
  - BLOOD SODIUM DECREASED [None]
  - JOINT SWELLING [None]
  - THERAPY REGIMEN CHANGED [None]
